FAERS Safety Report 9190659 (Version 1)
Quarter: 2013Q1

REPORT INFORMATION
  Report Type: Spontaneous
  Country: JP (occurrence: JP)
  Receive Date: 20130326
  Receipt Date: 20130326
  Transmission Date: 20140127
  Serious: Yes (Hospitalization, Other)
  Sender: FDA-Public Use
  Company Number: JP-PFIZER INC-2009281201

PATIENT
  Age: 4 Year
  Sex: Male
  Weight: 21 kg

DRUGS (5)
  1. ZARONTIN [Suspect]
     Indication: EPILEPSY
     Dosage: 10-12 ML FOR A DOSE
     Route: 048
     Dates: end: 20070826
  2. ZARONTIN [Suspect]
     Indication: MYOCLONIC EPILEPSY
  3. EXCEGRAN [Concomitant]
     Indication: EPILEPSY
     Dosage: 1.4 G, 2X/DAY
     Route: 048
  4. POTASSIUM BROMIDE [Concomitant]
     Indication: EPILEPSY
     Dosage: 1 G, 2X/DAY
     Route: 048
     Dates: start: 200707
  5. MEILAX [Concomitant]
     Indication: EPILEPSY
     Dosage: 1.5 MG, 2X/DAY
     Route: 048
     Dates: start: 200701

REACTIONS (4)
  - Aplastic anaemia [Recovered/Resolved]
  - Protein-losing gastroenteropathy [Recovered/Resolved]
  - Purpura [Unknown]
  - Antinuclear antibody positive [Recovered/Resolved]
